FAERS Safety Report 7484035-0 (Version None)
Quarter: 2011Q2

REPORT INFORMATION
  Report Type: 
  Country: None (occurrence: None)
  Receive Date: 20110517
  Receipt Date: 20110511
  Transmission Date: 20111010
  Serious: Yes (Other)
  Sender: FDA-Public Use
  Company Number: US-SANOFI-AVENTIS-2011SA024611

PATIENT
  Sex: Male

DRUGS (7)
  1. TAXOTERE [Suspect]
     Route: 041
  2. TAXOTERE [Suspect]
     Route: 041
     Dates: start: 20110101, end: 20110101
  3. ALL OTHER THERAPEUTIC PRODUCTS [Concomitant]
  4. TAXOTERE [Suspect]
     Indication: PROSTATE CANCER
     Route: 041
     Dates: start: 20110321, end: 20110321
  5. TAXOTERE [Suspect]
     Route: 041
  6. TAXOTERE [Suspect]
     Route: 041
  7. TAXOTERE [Suspect]
     Route: 041

REACTIONS (4)
  - FATIGUE [None]
  - OEDEMA [None]
  - PULMONARY MASS [None]
  - RED BLOOD CELL COUNT DECREASED [None]
